FAERS Safety Report 7449941-1 (Version None)
Quarter: 2011Q1

REPORT INFORMATION
  Report Type: 
  Country: None (occurrence: None)
  Receive Date: 20110302
  Receipt Date: 20101123
  Transmission Date: 20110831
  Serious: No
  Sender: FDA-Public Use
  Company Number: 018934

PATIENT
  Sex: Male
  Weight: 84 kg

DRUGS (11)
  1. LASIX [Concomitant]
  2. CARAFATE [Concomitant]
  3. PREDNISONE [Concomitant]
  4. ASPIRIN [Concomitant]
  5. COREG [Concomitant]
  6. CIMZIA [Suspect]
     Indication: CROHN'S DISEASE
     Dosage: 400 MG 1X/4 WEEKS SUBCUTANEOUS
     Route: 058
     Dates: start: 20091115
  7. NEXIUM [Concomitant]
  8. ACTONEL [Concomitant]
  9. ASACOL [Concomitant]
  10. NORVASC [Concomitant]
  11. PRESERVISION LUTEIN EYE VITA.+MIN.SUP.SOFTG. [Concomitant]

REACTIONS (4)
  - COUGH [None]
  - NAUSEA [None]
  - ABDOMINAL PAIN [None]
  - DIARRHOEA [None]
